FAERS Safety Report 13697932 (Version 2)
Quarter: 2017Q3

REPORT INFORMATION
  Report Type: Spontaneous
  Country: NZ (occurrence: NZ)
  Receive Date: 20170628
  Receipt Date: 20170720
  Transmission Date: 20171127
  Serious: Yes (Hospitalization)
  Sender: FDA-Public Use
  Company Number: NZ-SA-2017SA084315

PATIENT
  Age: 46 Year
  Sex: Male
  Weight: 138 kg

DRUGS (12)
  1. LANTUS [Suspect]
     Active Substance: INSULIN GLARGINE
     Indication: TYPE 2 DIABETES MELLITUS
     Dosage: DOSE:80 UNIT(S)
     Route: 058
     Dates: end: 20170317
  2. NOVOMIX FLEXPEN [Concomitant]
     Active Substance: INSULIN ASPART
     Dosage: STRENGTH: 100 IU/ML?DOSE:26 PRE-BREAKFAST AND 12 UNITS PRE-DINNER
     Route: 065
     Dates: start: 20170613
  3. COLECALCIFEROL [Concomitant]
     Active Substance: CHOLECALCIFEROL
     Dosage: STRENGTH: 50,000 IU
     Route: 065
     Dates: start: 20170330
  4. DOXAZOSIN [Concomitant]
     Active Substance: DOXAZOSIN\DOXAZOSIN MESYLATE
     Dosage: STRENGTH: 2 MG
     Route: 065
     Dates: start: 20170330
  5. QUINAPRIL HYDROCHLORIDE/HYDROCHLOROTHIAZIDE [Concomitant]
     Dosage: STRENGTH: 20 MG; 12.5 MG TAB
     Route: 065
     Dates: start: 20170330
  6. METFORMIN HYDROCHLORIDE. [Concomitant]
     Active Substance: METFORMIN HYDROCHLORIDE
     Dosage: STRENGTH: 500 MG
     Route: 065
     Dates: start: 20170330
  7. INSULIN [Concomitant]
     Active Substance: INSULIN NOS
  8. FLEXPEN [Concomitant]
     Active Substance: UNSPECIFIED INGREDIENT
     Dates: start: 20170613
  9. LANTUS [Suspect]
     Active Substance: INSULIN GLARGINE
     Indication: TYPE 2 DIABETES MELLITUS
     Dosage: DOSE:60 UNIT(S)
     Route: 058
     Dates: start: 201601
  10. ASPIRIN. [Concomitant]
     Active Substance: ASPIRIN
     Dosage: STRENGTH: 100 MG?FORM: ENTERIC COATED TAB
     Route: 065
     Dates: start: 20170330
  11. FLUOXETINE [Concomitant]
     Active Substance: FLUOXETINE HYDROCHLORIDE
     Dosage: STRENGTH: 20 MG
     Route: 065
     Dates: start: 20170330
  12. PRAVASTATIN SODIUM. [Concomitant]
     Active Substance: PRAVASTATIN SODIUM
     Dosage: STRENGTH: 20 MG
     Route: 065
     Dates: start: 20170330

REACTIONS (12)
  - Polydipsia [Recovered/Resolved]
  - Memory impairment [Recovered/Resolved]
  - Syncope [Recovered/Resolved]
  - Lipohypertrophy [Recovered/Resolved]
  - Loss of consciousness [Unknown]
  - Nausea [Recovered/Resolved]
  - Decreased appetite [Recovered/Resolved]
  - Product use issue [Unknown]
  - Vomiting [Recovered/Resolved]
  - Blood glucose increased [Recovering/Resolving]
  - Polyuria [Recovered/Resolved]
  - Fat tissue increased [Unknown]
